FAERS Safety Report 6045487-6 (Version None)
Quarter: 2009Q1

REPORT INFORMATION
  Report Type: 
  Country: None (occurrence: None)
  Receive Date: 20090121
  Receipt Date: 20090114
  Transmission Date: 20090719
  Serious: Yes (Congenital Anomaly)
  Sender: FDA-Public Use
  Company Number: A0681016A

PATIENT
  Sex: Male

DRUGS (26)
  1. PAXIL [Suspect]
     Indication: DEPRESSION
     Dosage: 20MG UNKNOWN
     Dates: start: 20010328
  2. AUGMENTIN '125' [Concomitant]
     Dates: start: 20010201
  3. PROMETHAZINE [Concomitant]
     Dates: start: 20010101, end: 20040101
  4. GUAIFENEX PSE [Concomitant]
     Dates: start: 20010101
  5. ALBUTEROL [Concomitant]
     Dates: start: 20010101
  6. SULFAMETHOXAZOLE AND TRIMETHOPRIM [Concomitant]
     Dates: start: 20010101
  7. METOCLOPRAMIDE [Concomitant]
     Dates: start: 20010101
  8. ZOFRAN [Concomitant]
     Dates: start: 20010101
  9. IBUPROFEN [Concomitant]
     Dates: start: 20010101
  10. ANEMAGEN [Concomitant]
     Dates: start: 20010101
  11. BUPROPION HCL [Concomitant]
     Dates: start: 20010101
  12. WELLBUTRIN SR [Concomitant]
     Indication: MOOD SWINGS
     Dates: start: 20010101
  13. GUAIFENESIN [Concomitant]
     Dates: start: 20010101
  14. CEFTIN [Concomitant]
     Dates: start: 20010101
  15. ORTHO 28 TRICYCLEN [Concomitant]
     Dates: start: 20000101, end: 20010101
  16. PRAVACHOL [Concomitant]
     Dates: start: 20000101, end: 20010101
  17. HUMULIN N [Concomitant]
     Dates: start: 20000101, end: 20010101
  18. TOBRADEX [Concomitant]
     Dates: start: 20000101
  19. COLESTID [Concomitant]
     Dates: start: 20000101, end: 20010101
  20. HUMALOG [Concomitant]
     Dates: start: 20010101
  21. WELCHOL [Concomitant]
     Dates: start: 20010101
  22. AMOXICILLIN [Concomitant]
     Dates: start: 20010101
  23. VITAMIN TAB [Concomitant]
  24. TYLENOL (CAPLET) [Concomitant]
  25. SUDAFED 12 HOUR [Concomitant]
  26. PHENERGAN HCL [Concomitant]

REACTIONS (9)
  - CARDIAC MURMUR [None]
  - DEVELOPMENTAL DELAY [None]
  - DRUG EXPOSURE DURING PREGNANCY [None]
  - PATENT DUCTUS ARTERIOSUS [None]
  - PULMONARY ARTERY STENOSIS CONGENITAL [None]
  - RESPIRATORY DISTRESS [None]
  - RESPIRATORY FAILURE [None]
  - SPEECH DISORDER DEVELOPMENTAL [None]
  - TACHYPNOEA [None]
